FAERS Safety Report 9205765 (Version 2)
Quarter: 2013Q2

REPORT INFORMATION
  Report Type: Spontaneous
  Country: JP (occurrence: JP)
  Receive Date: 20130403
  Receipt Date: 20130409
  Transmission Date: 20140414
  Serious: Yes (Other)
  Sender: FDA-Public Use
  Company Number: JP-009507513-1304JPN000455

PATIENT
  Age: 82 Year
  Sex: Male

DRUGS (6)
  1. GASTER D [Suspect]
     Dosage: 20 MG, BID (IN THE MORNING AND EVENING)
     Route: 048
  2. SEROQUEL [Concomitant]
     Dosage: 25 MG, TID(AFTER EVERY MEAL)
     Route: 048
  3. REMINYL [Concomitant]
     Indication: DEMENTIA
     Dosage: 4 ML, BID(IN THE MORNING AND EVENING)
     Route: 048
  4. MAGLAX [Concomitant]
     Dosage: UNK
     Route: 048
  5. ADALAT CR [Concomitant]
     Dosage: UNK
     Route: 048
  6. DIOVAN [Concomitant]
     Dosage: UNK
     Route: 048

REACTIONS (1)
  - Restlessness [Recovering/Resolving]
